FAERS Safety Report 6727979-7 (Version None)
Quarter: 2010Q2

REPORT INFORMATION
  Report Type: 
  Country: None (occurrence: None)
  Receive Date: 20100517
  Receipt Date: 20100505
  Transmission Date: 20101027
  Serious: No
  Sender: FDA-Public Use
  Company Number: NL-PFIZER INC-2010051334

PATIENT
  Age: 76 Year
  Sex: Female

DRUGS (4)
  1. REVATIO [Suspect]
     Indication: PULMONARY ARTERIAL HYPERTENSION
     Dosage: 10 MG, 3X/DAY
     Dates: start: 20100203
  2. REVATIO [Suspect]
     Dosage: 20 MG, 3X/DAY
     Dates: start: 20100210
  3. REVATIO [Suspect]
     Dosage: 10 MG, 3X/DAY
     Dates: start: 20100330, end: 20100408
  4. ESOMEPRAZOLE [Concomitant]
     Dosage: 40 MG, UNK
     Dates: start: 20100105

REACTIONS (8)
  - ARTHRALGIA [None]
  - COUGH [None]
  - DYSPNOEA [None]
  - FEELING COLD [None]
  - HYPOAESTHESIA [None]
  - INFLUENZA LIKE ILLNESS [None]
  - NASAL CONGESTION [None]
  - PERIPHERAL COLDNESS [None]
